FAERS Safety Report 12442569 (Version 1)
Quarter: 2016Q2

REPORT INFORMATION
  Report Type: Spontaneous
  Country: US (occurrence: None)
  Receive Date: 20160606
  Receipt Date: 20160606
  Transmission Date: 20160815
  Serious: No
  Sender: FDA-Public Use
  Company Number: None

PATIENT
  Age: 19 Year
  Sex: Female
  Weight: 37.65 kg

DRUGS (1)
  1. CELECOXIB 200 LUPIN, 200 MG [Suspect]
     Active Substance: CELECOXIB
     Indication: PAIN
     Route: 048
     Dates: start: 20160601, end: 20160603

REACTIONS (2)
  - Drug ineffective [None]
  - Economic problem [None]
